FAERS Safety Report 7100185-2 (Version None)
Quarter: 2010Q4

REPORT INFORMATION
  Report Type: 
  Country: None (occurrence: None)
  Receive Date: 20101112
  Receipt Date: 20100908
  Transmission Date: 20110411
  Serious: No
  Sender: FDA-Public Use
  Company Number: A0880293A

PATIENT
  Age: 39 Year
  Sex: Male

DRUGS (3)
  1. COREG [Suspect]
     Dosage: 12.5MG TWICE PER DAY
     Route: 048
     Dates: start: 20100907, end: 20100908
  2. SIMVASTATIN [Concomitant]
  3. NITROGLYCERIN [Concomitant]

REACTIONS (2)
  - HYPERSENSITIVITY [None]
  - LIP SWELLING [None]
